FAERS Safety Report 22271644 (Version 1)
Quarter: 2023Q2

REPORT INFORMATION
  Report Type: Spontaneous
  Country: US (occurrence: US)
  Receive Date: 20230502
  Receipt Date: 20230502
  Transmission Date: 20230722
  Serious: No
  Sender: FDA-Public Use
  Company Number: US-ALKERMES INC.-ALK-2023-001798

PATIENT
  Sex: Male
  Weight: 68.027 kg

DRUGS (4)
  1. VIVITROL [Suspect]
     Active Substance: NALTREXONE
     Indication: Drug dependence
     Dosage: 380 MILLIGRAM, QMO
     Route: 030
     Dates: end: 20230418
  2. VIVITROL [Suspect]
     Active Substance: NALTREXONE
     Dosage: 380 MILLIGRAM, QMO
     Route: 030
     Dates: start: 20220926
  3. VIVITROL [Suspect]
     Active Substance: NALTREXONE
     Dosage: 380 MILLIGRAM, QMO
     Route: 030
     Dates: start: 20211227
  4. UNSPECIFIED INGREDIENT [Suspect]
     Active Substance: UNSPECIFIED INGREDIENT
     Indication: Psoriasis
     Dosage: UNK
     Route: 065
     Dates: start: 20230418

REACTIONS (10)
  - Needle issue [Recovered/Resolved]
  - Product preparation error [Recovered/Resolved]
  - Drug interaction [Unknown]
  - Gait inability [Unknown]
  - Injection site reaction [Unknown]
  - Injection site pain [Unknown]
  - Injection site movement impairment [Unknown]
  - Injection site rash [Unknown]
  - Injection site discolouration [Unknown]
  - Drug dependence [Recovered/Resolved]

NARRATIVE: CASE EVENT DATE: 20230418
